FAERS Safety Report 13506931 (Version 2)
Quarter: 2017Q2

REPORT INFORMATION
  Report Type: Report from Study
  Country: None (occurrence: ES)
  Receive Date: 20170503
  Receipt Date: 20170520
  Transmission Date: 20170830
  Serious: Yes (Hospitalization)
  Sender: FDA-Public Use
  Company Number: ES-ABBVIE-17K-144-1959053-00

PATIENT
  Age: 72 Year
  Sex: Female
  Weight: 63 kg

DRUGS (1)
  1. DUODOPA [Suspect]
     Active Substance: CARBIDOPA\LEVODOPA
     Indication: PARKINSON^S DISEASE
     Route: 050
     Dates: start: 20170407

REACTIONS (3)
  - Fatigue [Recovered/Resolved]
  - Fluid retention [Recovering/Resolving]
  - Medical device site haematoma [Recovered/Resolved]

NARRATIVE: CASE EVENT DATE: 20170419
